FAERS Safety Report 8566087 (Version 2)
Quarter: 2012Q4

REPORT INFORMATION
  Report Type: 
  Country: US (occurrence: US)
  Receive Date: 20120517
  Receipt Date: 20120905
  Transmission Date: 20130627
  Serious: Yes (Hospitalization)
  Sender: FDA-Public Use
  Company Number: US-AMGEN-USASP2012029942

PATIENT
  Age: 57 Year

DRUGS (2)
  1. ENBREL [Suspect]
     Indication: RHEUMATOID ARTHRITIS
     Dosage: 50 mg, qwk
     Dates: start: 20040101
  2. TREXALL [Concomitant]
     Dosage: UNK

REACTIONS (5)
  - Pain [Recovered/Resolved]
  - Bone pain [Recovered/Resolved]
  - Aphagia [Recovered/Resolved]
  - Headache [Not Recovered/Not Resolved]
  - Injection site pain [Not Recovered/Not Resolved]
